FAERS Safety Report 20626363 (Version 3)
Quarter: 2024Q2

REPORT INFORMATION
  Report Type: Spontaneous
  Country: PT (occurrence: PT)
  Receive Date: 20220323
  Receipt Date: 20240411
  Transmission Date: 20240716
  Serious: Yes (Hospitalization, Disabling, Other)
  Sender: FDA-Public Use
  Company Number: PT-AUROBINDO-AUR-APL-2017-42029

PATIENT
  Age: 70 Year
  Sex: Female

DRUGS (2)
  1. DOCETAXEL [Suspect]
     Active Substance: DOCETAXEL\DOCETAXEL ANHYDROUS
     Indication: Neuroendocrine tumour of the lung metastatic
     Dosage: UNK, CYCLICAL
     Route: 065
  2. CARBOPLATIN [Suspect]
     Active Substance: CARBOPLATIN
     Indication: Neuroendocrine tumour of the lung metastatic
     Dosage: UNK, CYCLICAL
     Route: 065

REACTIONS (17)
  - Escherichia bacteraemia [Recovered/Resolved]
  - Bacteraemia [Unknown]
  - Febrile neutropenia [Recovered/Resolved]
  - Pyelonephritis [Recovered/Resolved]
  - Cellulitis orbital [Unknown]
  - Endophthalmitis [Unknown]
  - Amaurosis [Not Recovered/Not Resolved]
  - Urosepsis [Recovered/Resolved]
  - Eye pruritus [Unknown]
  - Inflammation [Unknown]
  - Panophthalmitis [Recovered/Resolved with Sequelae]
  - Immunosuppression [Recovered/Resolved]
  - Escherichia sepsis [Recovered/Resolved]
  - Bacterial pyelonephritis [Recovered/Resolved]
  - Product use in unapproved indication [Recovered/Resolved]
  - Off label use [Recovered/Resolved]
  - Pruritus [Unknown]
